FAERS Safety Report 18571025 (Version 1)
Quarter: 2020Q4

REPORT INFORMATION
  Report Type: Spontaneous
  Country: US (occurrence: US)
  Receive Date: 20201202
  Receipt Date: 20201202
  Transmission Date: 20210114
  Serious: No
  Sender: FDA-Public Use
  Company Number: US-NOVEN PHARMACEUTICALS, INC.-2020US004473

PATIENT
  Sex: Female
  Weight: 60.77 kg

DRUGS (6)
  1. VITAMINS NOS [Concomitant]
     Active Substance: VITAMINS
     Indication: PRODUCT USED FOR UNKNOWN INDICATION
  2. MINIVELLE [Suspect]
     Active Substance: ESTRADIOL
     Indication: OFF LABEL USE
  3. MINIVELLE [Suspect]
     Active Substance: ESTRADIOL
     Indication: INSOMNIA
  4. MINIVELLE [Suspect]
     Active Substance: ESTRADIOL
     Indication: HORMONE REPLACEMENT THERAPY
     Dosage: 0.1 MG, 2/WEEK
     Route: 062
     Dates: start: 202002
  5. MINIVELLE [Suspect]
     Active Substance: ESTRADIOL
     Indication: DEPRESSION
     Dosage: UNK
  6. EXCEDRIN ASPIRIN FREE [Concomitant]
     Indication: HEADACHE
     Dosage: UNK

REACTIONS (3)
  - Off label use [Not Recovered/Not Resolved]
  - Visual impairment [Not Recovered/Not Resolved]
  - Therapeutic response unexpected [Not Recovered/Not Resolved]

NARRATIVE: CASE EVENT DATE: 2020
